FAERS Safety Report 10621536 (Version 1)
Quarter: 2014Q4

REPORT INFORMATION
  Report Type: Spontaneous
  Country: US (occurrence: None)
  Receive Date: 20141128
  Receipt Date: 20141128
  Transmission Date: 20150529
  Serious: Yes (Other)
  Sender: FDA-Public Use
  Company Number: ADR-2014-01108

PATIENT
  Age: 26 Year
  Sex: Female

DRUGS (1)
  1. BACLOFEN INTRATHECAL [Suspect]
     Active Substance: BACLOFEN
     Indication: MUSCLE SPASTICITY
     Dates: start: 20140409

REACTIONS (4)
  - Catheter site erosion [None]
  - Medical device complication [None]
  - Impaired healing [None]
  - Immune system disorder [None]
